FAERS Safety Report 24780854 (Version 1)
Quarter: 2024Q4

REPORT INFORMATION
  Report Type: Report from Study
  Country: US (occurrence: US)
  Receive Date: 20241227
  Receipt Date: 20241227
  Transmission Date: 20250115
  Serious: Yes (Other)
  Sender: ABBVIE
  Company Number: US-ABBVIE-5966196

PATIENT
  Age: 66 Year
  Sex: Female

DRUGS (2)
  1. RINVOQ [Suspect]
     Active Substance: UPADACITINIB
     Indication: Rheumatoid arthritis
     Dosage: STRENGTH- 15 MG, LAST ADMIN DATE 2024
     Route: 048
     Dates: start: 202408
  2. RINVOQ [Suspect]
     Active Substance: UPADACITINIB
     Indication: Rheumatoid arthritis
     Dosage: STRENGTH- 15 MG, FIRST ADMIN DATE 2024
     Route: 048
     Dates: end: 202411

REACTIONS (10)
  - Pulmonary oedema [Unknown]
  - Lung disorder [Unknown]
  - COVID-19 [Recovering/Resolving]
  - Muscle spasms [Recovering/Resolving]
  - Tremor [Unknown]
  - Tympanic membrane perforation [Unknown]
  - Wheezing [Unknown]
  - Malaise [Not Recovered/Not Resolved]
  - Increased viscosity of upper respiratory secretion [Unknown]
  - COVID-19 [Recovered/Resolved]

NARRATIVE: CASE EVENT DATE: 20240101
